FAERS Safety Report 12616254 (Version 2)
Quarter: 2024Q2

REPORT INFORMATION
  Report Type: Other
  Country: US (occurrence: US)
  Receive Date: 20160802
  Receipt Date: 20240613
  Transmission Date: 20240716
  Serious: Yes (Other)
  Sender: FDA-Public Use
  Company Number: US-ASTELLAS-2016US029197

PATIENT
  Age: 35 Year
  Sex: Male

DRUGS (10)
  1. CRESEMBA [Suspect]
     Active Substance: ISAVUCONAZONIUM SULFATE
     Indication: Fungal infection
     Dosage: UNK UNK, UNKNOWN FREQ.
     Route: 042
     Dates: start: 20160720
  2. CRESEMBA [Suspect]
     Active Substance: ISAVUCONAZONIUM SULFATE
     Indication: Systemic mycosis
  3. AMBISOME [Suspect]
     Active Substance: AMPHOTERICIN B
     Indication: Fungal infection
     Dosage: UNK UNK, UNKNOWN FREQ. (2 DAYS)
     Route: 065
  4. AMBISOME [Suspect]
     Active Substance: AMPHOTERICIN B
     Indication: Systemic mycosis
  5. DAPTOMYCIN [Suspect]
     Active Substance: DAPTOMYCIN
     Indication: Fungal infection
     Dosage: UNK, UNKNOWN FREQ.
     Route: 065
  6. TELAVANCIN [Suspect]
     Active Substance: TELAVANCIN
     Indication: Fungal infection
     Dosage: UNK, UNKNOWN FREQ.
     Route: 065
  7. TELAVANCIN [Suspect]
     Active Substance: TELAVANCIN
     Indication: Systemic mycosis
  8. POLYMYXIN B [Suspect]
     Active Substance: POLYMYXIN B
     Indication: Fungal infection
     Dosage: UNK, UNKNOWN FREQ.
     Route: 065
  9. POLYMYXIN B [Suspect]
     Active Substance: POLYMYXIN B
     Indication: Systemic mycosis
  10. MEROPENEM [Suspect]
     Active Substance: MEROPENEM
     Indication: Fungal infection
     Dosage: UNK, UNKNOWN FREQ.
     Route: 065
     Dates: start: 20160720

REACTIONS (4)
  - Rhabdomyolysis [Not Recovered/Not Resolved]
  - Blood creatine phosphokinase increased [Unknown]
  - Renal impairment [Unknown]
  - Off label use [Unknown]

NARRATIVE: CASE EVENT DATE: 20160720
